FAERS Safety Report 7064773-4 (Version None)
Quarter: 2010Q4

REPORT INFORMATION
  Report Type: 
  Country: None (occurrence: None)
  Receive Date: 20101027
  Receipt Date: 19821004
  Transmission Date: 20110411
  Serious: Yes (Death, Hospitalization)
  Sender: FDA-Public Use
  Company Number: DE-ROCHE-820309821002

PATIENT
  Age: 83 Year
  Sex: Male
  Weight: 60 kg

DRUGS (9)
  1. VALIUM [Suspect]
     Indication: HYPERVENTILATION
     Route: 042
     Dates: start: 19820303, end: 19820303
  2. VALIUM [Suspect]
     Route: 048
  3. ATOSIL [Suspect]
     Route: 042
     Dates: start: 19820303, end: 19820303
  4. DIGOXIN [Concomitant]
     Route: 048
     Dates: start: 19820223, end: 19820409
  5. ISOSORBIDE DINITRATE [Concomitant]
     Route: 048
  6. VIBRAMYCIN [Concomitant]
     Route: 048
  7. ISOPTIN [Concomitant]
     Route: 048
  8. ALDACTONE FOR INJECTION [Concomitant]
     Route: 048
  9. HEPARIN [Concomitant]
     Route: 058

REACTIONS (6)
  - ATAXIA [None]
  - BLOOD PRESSURE DECREASED [None]
  - CARDIOPULMONARY FAILURE [None]
  - CORONARY ARTERY DISEASE [None]
  - MYOCARDIAL INFARCTION [None]
  - STUPOR [None]
